FAERS Safety Report 9769934 (Version 2)
Quarter: 2013Q4

REPORT INFORMATION
  Report Type: Spontaneous
  Country: US (occurrence: US)
  Receive Date: 20131218
  Receipt Date: 20131218
  Transmission Date: 20140711
  Serious: No
  Sender: FDA-Public Use
  Company Number: US-VERTEX PHARMACEUTICALS INC-AE-2011-000530

PATIENT
  Age: 55 Year
  Sex: Male
  Weight: 108.18 kg

DRUGS (6)
  1. INCIVEK [Suspect]
     Indication: HEPATITIS C
     Route: 048
     Dates: start: 20110706, end: 20110718
  2. RIBAVIRIN [Concomitant]
     Indication: HEPATITIS C
     Route: 048
     Dates: start: 20110706, end: 20110718
  3. PEGINTERFERON [Concomitant]
     Indication: HEPATITIS C
     Route: 058
     Dates: start: 20110706
  4. NOVOLOG 30/70 [Concomitant]
     Indication: TYPE 1 DIABETES MELLITUS
  5. SYNTHROID [Concomitant]
     Indication: HYPERTHYROIDISM
     Route: 048
  6. LOVAZA FISH OIL [Concomitant]
     Indication: SUPPLEMENTATION THERAPY

REACTIONS (7)
  - Disorientation [Recovered/Resolved]
  - Speech disorder [Recovered/Resolved]
  - Confusional state [Recovered/Resolved]
  - Disturbance in attention [Recovered/Resolved]
  - Memory impairment [Recovered/Resolved]
  - Lethargy [Recovered/Resolved]
  - Haemorrhoids [Unknown]
